FAERS Safety Report 20200858 (Version 1)
Quarter: 2021Q4

REPORT INFORMATION
  Report Type: Report from Study
  Country: US (occurrence: US)
  Receive Date: 20211217
  Receipt Date: 20211217
  Transmission Date: 20220303
  Serious: Yes (Death, Hospitalization, Other)
  Sender: FDA-Public Use
  Company Number: US-EXELIXIS-CABO-21045969

PATIENT
  Sex: Female
  Weight: 47.619 kg

DRUGS (11)
  1. CABOMETYX [Suspect]
     Active Substance: CABOZANTINIB S-MALATE
     Indication: Renal cancer
     Dosage: 60 MG, QD
     Route: 048
     Dates: start: 20210910, end: 20211011
  2. MYCOPHENOLATE MOFETIL [Concomitant]
     Active Substance: MYCOPHENOLATE MOFETIL
  3. ULORIC [Concomitant]
     Active Substance: FEBUXOSTAT
  4. NEXIUM [Concomitant]
     Active Substance: ESOMEPRAZOLE MAGNESIUM
  5. OLMESARTAN MEDOXOMIL [Concomitant]
     Active Substance: OLMESARTAN MEDOXOMIL
  6. HYDROXYCHLOROQUINE SULFATE [Concomitant]
     Active Substance: HYDROXYCHLOROQUINE SULFATE
  7. ATORVASTATIN CALCIUM [Concomitant]
     Active Substance: ATORVASTATIN CALCIUM
  8. AMLODIPINE BESYLATE [Concomitant]
     Active Substance: AMLODIPINE BESYLATE
  9. CALCIUM CARBONATE\ERGOCALCIFEROL\RETINOL [Concomitant]
     Active Substance: CALCIUM CARBONATE\ERGOCALCIFEROL\RETINOL
  10. ATENOLOL [Concomitant]
     Active Substance: ATENOLOL
  11. HYDRALAZINE HCL [Concomitant]
     Active Substance: HYDRALAZINE HYDROCHLORIDE

REACTIONS (8)
  - Failure to thrive [Fatal]
  - Encephalopathy [Unknown]
  - Acute kidney injury [Unknown]
  - Mucosal inflammation [Fatal]
  - Thrombocytopenia [Fatal]
  - Anaemia [Fatal]
  - Renal cell carcinoma [Fatal]
  - Metastases to bone [Unknown]
